FAERS Safety Report 7644789-7 (Version None)
Quarter: 2011Q3

REPORT INFORMATION
  Report Type: 
  Country: None (occurrence: None)
  Receive Date: 20110729
  Receipt Date: 20110715
  Transmission Date: 20111222
  Serious: Yes (Other)
  Sender: FDA-Public Use
  Company Number: AR-SANOFI-AVENTIS-2011SA040960

PATIENT
  Age: 79 Year
  Sex: Male
  Weight: 99 kg

DRUGS (8)
  1. DRONEDARONE HCL [Suspect]
     Indication: ATRIAL FIBRILLATION
     Route: 048
     Dates: start: 20110427
  2. PERINDOPRIL [Concomitant]
  3. FUROSEMIDE [Concomitant]
  4. ATORVASTATIN [Concomitant]
  5. ASPIRIN [Concomitant]
  6. WARFARIN SODIUM [Concomitant]
     Dosage: 3.5MG WEEKLY
  7. CARVEDILOL [Concomitant]
  8. DIURETICS [Concomitant]

REACTIONS (1)
  - RENAL FAILURE ACUTE [None]
